FAERS Safety Report 9096622 (Version 3)
Quarter: 2014Q1

REPORT INFORMATION
  Report Type: Spontaneous
  Country: DE (occurrence: DE)
  Receive Date: 20130211
  Receipt Date: 20140225
  Transmission Date: 20141002
  Serious: Yes (Death, Other)
  Sender: FDA-Public Use
  Company Number: PHHY2013DE011262

PATIENT
  Sex: Male

DRUGS (1)
  1. DIOVAN [Suspect]
     Dosage: (MATERNAL DOSE: 80 MG PER DAY)
     Route: 064

REACTIONS (15)
  - Death [Fatal]
  - Pulmonary hypoplasia [Unknown]
  - Metabolic acidosis [Unknown]
  - Congenital cystic kidney disease [Unknown]
  - Renal hypertension [Unknown]
  - Renal dysplasia [Unknown]
  - Renal tubular disorder [Unknown]
  - Nephrogenic anaemia [Unknown]
  - Hyperparathyroidism secondary [Unknown]
  - Hearing impaired [Unknown]
  - Premature baby [Unknown]
  - Renal failure [Unknown]
  - Anuria [Unknown]
  - Oedema [Unknown]
  - Foetal exposure during pregnancy [Unknown]
